FAERS Safety Report 15707191 (Version 2)
Quarter: 2018Q4

REPORT INFORMATION
  Report Type: Spontaneous
  Country: DE (occurrence: DE)
  Receive Date: 20181210
  Receipt Date: 20181217
  Transmission Date: 20190205
  Serious: Yes (Other)
  Sender: FDA-Public Use
  Company Number: PHHY2018DE174712

PATIENT
  Age: 75 Year
  Sex: Female

DRUGS (9)
  1. IPILIMUMAB [Suspect]
     Active Substance: IPILIMUMAB
     Indication: MALIGNANT MELANOMA
     Dosage: 63.5 MG, Q3W
     Route: 042
     Dates: start: 20180110, end: 20180406
  2. NIVOLUMAB [Suspect]
     Active Substance: NIVOLUMAB
     Dosage: 63.5 MG, Q3W
     Route: 065
     Dates: start: 20180110
  3. NIVOLUMAB [Suspect]
     Active Substance: NIVOLUMAB
     Dosage: 480 MG, Q4W
     Route: 042
  4. DEXAMETHASONE. [Concomitant]
     Active Substance: DEXAMETHASONE
     Indication: PRODUCT USED FOR UNKNOWN INDICATION
     Dosage: UNK
     Route: 065
  5. IPILIMUMAB [Suspect]
     Active Substance: IPILIMUMAB
     Dosage: 189 MG, Q3W
     Route: 042
     Dates: start: 20180110, end: 20180406
  6. IPILIMUMAB [Suspect]
     Active Substance: IPILIMUMAB
     Dosage: 190.5 MG, Q3W
     Route: 065
     Dates: start: 20180110
  7. PREDNISOLONE. [Concomitant]
     Active Substance: PREDNISOLONE
     Indication: PRODUCT USED FOR UNKNOWN INDICATION
     Dosage: UNK
     Route: 065
  8. NIVOLUMAB [Suspect]
     Active Substance: NIVOLUMAB
     Indication: MALIGNANT MELANOMA
     Dosage: 189 MG, Q2W
     Route: 042
     Dates: start: 20180110, end: 20180427
  9. ZOMETA [Suspect]
     Active Substance: ZOLEDRONIC ACID
     Indication: PRODUCT USED FOR UNKNOWN INDICATION
     Dosage: UNK
     Route: 065

REACTIONS (8)
  - Decreased appetite [Recovered/Resolved]
  - Vitiligo [Not Recovered/Not Resolved]
  - Nausea [Recovered/Resolved]
  - Stomatitis [Recovering/Resolving]
  - Cerebellar syndrome [Recovered/Resolved]
  - Ataxia [Recovered/Resolved]
  - Fatigue [Recovered/Resolved]
  - Tremor [Recovered/Resolved]

NARRATIVE: CASE EVENT DATE: 20180312
